FAERS Safety Report 18196523 (Version 2)
Quarter: 2020Q3

REPORT INFORMATION
  Report Type: Spontaneous
  Country: AR (occurrence: AR)
  Receive Date: 20200826
  Receipt Date: 20200908
  Transmission Date: 20201103
  Serious: Yes (Other)
  Sender: FDA-Public Use
  Company Number: AR-AMGEN-ARGSP2020137703

PATIENT
  Age: 74 Year
  Sex: Female

DRUGS (6)
  1. ZOLOFT [Concomitant]
     Active Substance: SERTRALINE HYDROCHLORIDE
     Indication: DEPRESSION
     Dosage: UNK
     Dates: start: 2019
  2. JATAMANSIN [TROXERUTIN] [Concomitant]
     Indication: ANTICOAGULANT THERAPY
     Dosage: UNK
  3. ENBREL [Suspect]
     Active Substance: ETANERCEPT
     Indication: PSORIATIC ARTHROPATHY
     Dosage: 50 MG, WEEKLY
     Route: 065
     Dates: start: 20120406
  4. CLONAZEPAM. [Concomitant]
     Active Substance: CLONAZEPAM
     Dosage: UNK
  5. CIRCONYL [Concomitant]
     Indication: MUSCLE SPASMS
     Dosage: UNK
  6. PLEYAR [Concomitant]
     Dosage: UNK

REACTIONS (2)
  - Decreased immune responsiveness [Unknown]
  - Immunosuppression [Unknown]

NARRATIVE: CASE EVENT DATE: 20200820
